FAERS Safety Report 19423659 (Version 4)
Quarter: 2021Q3

REPORT INFORMATION
  Report Type: Report from Study
  Country: IN (occurrence: IN)
  Receive Date: 20210616
  Receipt Date: 20210930
  Transmission Date: 20211014
  Serious: Yes (Hospitalization)
  Sender: FDA-Public Use
  Company Number: IN-JNJFOC-20210626267

PATIENT
  Age: 76 Year
  Sex: Male
  Weight: 48.1 kg

DRUGS (10)
  1. SEPTRAN DS [Concomitant]
     Indication: BACTERIAL INFECTION
     Route: 048
     Dates: start: 20210526
  2. TRANEXAMIC ACID. [Concomitant]
     Active Substance: TRANEXAMIC ACID
     Indication: EPISTAXIS
     Route: 048
     Dates: start: 20210613, end: 20210613
  3. ACETYLSALICYLIC ACID [Concomitant]
     Active Substance: ASPIRIN
     Indication: HYPERTENSION
     Route: 048
     Dates: start: 2016
  4. CLIACAR [Concomitant]
     Indication: HYPERTENSION
     Route: 048
     Dates: start: 202002
  5. DARATUMUMAB [Suspect]
     Active Substance: DARATUMUMAB
     Indication: PLASMA CELL MYELOMA
     Dosage: STOP DATE 12?JUN?2021
     Route: 042
     Dates: start: 20210526, end: 20210605
  6. DUPHALAC [Concomitant]
     Active Substance: LACTULOSE
     Indication: CONSTIPATION
     Route: 048
     Dates: start: 20210611, end: 20210613
  7. NODOSIS [Concomitant]
     Active Substance: SODIUM BICARBONATE
     Indication: BLOOD SODIUM DECREASED
     Route: 048
     Dates: start: 20210526
  8. ACIVIR [Concomitant]
     Active Substance: ACYCLOVIR
     Indication: ANTIVIRAL PROPHYLAXIS
     Route: 048
     Dates: start: 20210526
  9. NACL [Concomitant]
     Active Substance: SODIUM CHLORIDE
     Indication: HYPERVOLAEMIA
     Route: 042
     Dates: start: 20210611, end: 20210614
  10. TOLVAPTAN [Concomitant]
     Active Substance: TOLVAPTAN
     Indication: HYPONATRAEMIA
     Route: 048
     Dates: start: 20210613

REACTIONS (3)
  - Anaemia [Not Recovered/Not Resolved]
  - Renal impairment [Not Recovered/Not Resolved]
  - Thrombocytopenia [Recovered/Resolved]

NARRATIVE: CASE EVENT DATE: 20210611
